FAERS Safety Report 6692069-9 (Version None)
Quarter: 2010Q2

REPORT INFORMATION
  Report Type: 
  Country: None (occurrence: None)
  Receive Date: 20100422
  Receipt Date: 20100416
  Transmission Date: 20101027
  Serious: Yes (Other)
  Sender: FDA-Public Use
  Company Number: FR-BRISTOL-MYERS SQUIBB COMPANY-15067069

PATIENT
  Age: 39 Year
  Sex: Male
  Weight: 130 kg

DRUGS (2)
  1. ABILIFY [Suspect]
  2. SEROPLEX [Concomitant]

REACTIONS (3)
  - PHLEBITIS [None]
  - PULMONARY EMBOLISM [None]
  - SOMNOLENCE [None]
